FAERS Safety Report 9478053 (Version 2)
Quarter: 2013Q3

REPORT INFORMATION
  Report Type: Report from Study
  Country: PL (occurrence: PL)
  Receive Date: 20130827
  Receipt Date: 20130827
  Transmission Date: 20140515
  Serious: Yes (Hospitalization, Other)
  Sender: FDA-Public Use
  Company Number: PHHO2011PL09081

PATIENT
  Age: 54 Year
  Sex: Male
  Weight: 115 kg

DRUGS (12)
  1. PLACEBO [Suspect]
     Indication: CORONARY ARTERY DISEASE
     Dosage: UNK
     Route: 048
     Dates: start: 20100721
  2. ALISKIREN [Suspect]
     Indication: CORONARY ARTERY DISEASE
     Dosage: 150 MG, UNK
     Route: 048
  3. ACARD [Concomitant]
     Indication: ANTIPLATELET THERAPY
     Dosage: 75 UNK, UNK
     Dates: start: 19990101
  4. BISOPROLOL [Concomitant]
     Indication: MYOCARDIAL ISCHAEMIA
     Dosage: 7.5 UNK, UNK
     Dates: start: 20100520
  5. ACCUPRO [Concomitant]
     Indication: HYPERTENSION
     Dosage: 20 UNK, UNK
     Dates: start: 20100513
  6. AMLODIPINE [Concomitant]
     Indication: HYPERTENSION
     Dosage: 5 UNK, UNK
     Dates: start: 19990115
  7. CARDURA [Concomitant]
     Indication: HYPERTENSION
     Dosage: 4 UNK, UNK
     Dates: start: 20070507
  8. ZOCOR [Concomitant]
     Indication: HYPERLIPIDAEMIA
     Dosage: 40 UNK, UNK
     Dates: start: 19990115
  9. SIOFOR [Concomitant]
     Indication: DIABETES MELLITUS
     Dosage: 3000 UNK, UNK
     Dates: start: 20100513
  10. NOLPAZA [Concomitant]
     Indication: DUODENAL ULCER
     Dosage: 20 UNK, UNK
     Dates: start: 20100513
  11. TORSEMIDE [Concomitant]
     Indication: HYPERTENSION
     Dosage: 2.5 MG, UNK
     Dates: start: 20110530
  12. CLOPIDOGREL [Concomitant]
     Indication: PERCUTANEOUS CORONARY INTERVENTION
     Dosage: 75 MG, UNK
     Dates: start: 20110527

REACTIONS (1)
  - Coronary artery disease [Recovered/Resolved]
